FAERS Safety Report 9610391 (Version 2)
Quarter: 2013Q4

REPORT INFORMATION
  Report Type: Spontaneous
  Country: US (occurrence: US)
  Receive Date: 20131009
  Receipt Date: 20131009
  Transmission Date: 20140711
  Serious: No
  Sender: FDA-Public Use
  Company Number: US-PURDUE-USA-2012-0096890

PATIENT
  Sex: Female

DRUGS (2)
  1. BUTRANS [Suspect]
     Indication: ARTHRALGIA
     Dosage: 10 MCG, UNK
     Route: 062
  2. BUTRANS [Suspect]
     Dosage: 5 MCG, UNK
     Route: 062

REACTIONS (5)
  - Impaired work ability [Unknown]
  - Somnolence [Unknown]
  - Pruritus [Unknown]
  - Malaise [Unknown]
  - Asthenia [Unknown]
